FAERS Safety Report 7911408 (Version 4)
Quarter: 2012Q4

REPORT INFORMATION
  Report Type: 
  Country: US (occurrence: US)
  Receive Date: 20110422
  Receipt Date: 20120927
  Transmission Date: 20130627
  Serious: Yes (Hospitalization)
  Sender: FDA-Public Use
  Company Number: US-ASTRAZENECA-2010SE55369

PATIENT
  Age: 60 Year
  Sex: Male
  Weight: 95.3 kg

DRUGS (29)
  1. SEROQUEL XR [Suspect]
     Indication: SCHIZOPHRENIA, PARANOID TYPE
     Route: 048
  2. SEROQUEL XR [Suspect]
     Indication: DEPRESSION
     Route: 048
  3. SEROQUEL XR [Suspect]
     Indication: ANXIETY
     Route: 048
  4. SEROQUEL XR [Suspect]
     Indication: SCHIZOPHRENIA, PARANOID TYPE
     Route: 048
  5. SEROQUEL XR [Suspect]
     Indication: DEPRESSION
     Route: 048
  6. SEROQUEL XR [Suspect]
     Indication: ANXIETY
     Route: 048
  7. SEROQUEL XR [Suspect]
     Indication: SCHIZOPHRENIA, PARANOID TYPE
     Route: 048
     Dates: start: 2005
  8. SEROQUEL XR [Suspect]
     Indication: DEPRESSION
     Route: 048
     Dates: start: 2005
  9. SEROQUEL XR [Suspect]
     Indication: ANXIETY
     Route: 048
     Dates: start: 2005
  10. SEROQUEL XR [Suspect]
     Indication: SCHIZOPHRENIA, PARANOID TYPE
     Route: 048
     Dates: end: 2010
  11. SEROQUEL XR [Suspect]
     Indication: DEPRESSION
     Route: 048
     Dates: end: 2010
  12. SEROQUEL XR [Suspect]
     Indication: ANXIETY
     Route: 048
     Dates: end: 2010
  13. SEROQUEL XR [Suspect]
     Indication: SCHIZOPHRENIA, PARANOID TYPE
     Route: 048
     Dates: start: 2008, end: 2012
  14. SEROQUEL XR [Suspect]
     Indication: DEPRESSION
     Route: 048
     Dates: start: 2008, end: 2012
  15. SEROQUEL XR [Suspect]
     Indication: ANXIETY
     Route: 048
     Dates: start: 2008, end: 2012
  16. SEROQUEL XR [Suspect]
     Indication: SCHIZOPHRENIA, PARANOID TYPE
     Route: 048
     Dates: start: 20120914
  17. SEROQUEL XR [Suspect]
     Indication: DEPRESSION
     Route: 048
     Dates: start: 20120914
  18. SEROQUEL XR [Suspect]
     Indication: ANXIETY
     Route: 048
     Dates: start: 20120914
  19. CLONAZEPAM [Concomitant]
     Indication: ANXIETY
     Route: 048
  20. DEPAKOTE [Concomitant]
     Indication: MOOD SWINGS
     Route: 048
  21. DEPAKOTE [Concomitant]
     Indication: MOOD SWINGS
     Route: 048
  22. TRIPHEXIN [Concomitant]
     Indication: ADVERSE DRUG REACTION
     Route: 048
  23. FLUPHENAZINE [Concomitant]
     Route: 048
  24. NAVANE [Concomitant]
     Indication: PROPHYLAXIS AGAINST ALCOHOLIC WITHDRAWAL SYNDROME
  25. DIVALPROEX [Concomitant]
     Indication: SCHIZOPHRENIA
     Dosage: 125 MG every morning
     Dates: start: 2010
  26. DIVALPROEX [Concomitant]
     Indication: SCHIZOPHRENIA
     Dosage: 250 MG at night
     Dates: start: 2010
  27. KLONOPIN [Concomitant]
     Indication: ANXIETY
     Route: 048
  28. KLONOPIN [Concomitant]
     Indication: SLEEP DISORDER
     Route: 048
  29. TRAZADONE [Concomitant]
     Indication: SLEEP DISORDER
     Route: 048

REACTIONS (14)
  - Schizophrenia, paranoid type [Recovered/Resolved]
  - Depression [Unknown]
  - Abdominal pain upper [Not Recovered/Not Resolved]
  - Diarrhoea [Not Recovered/Not Resolved]
  - Pollakiuria [Not Recovered/Not Resolved]
  - Prostatic disorder [Unknown]
  - Coordination abnormal [Unknown]
  - Hypersomnia [Unknown]
  - Dizziness [Not Recovered/Not Resolved]
  - Libido decreased [Unknown]
  - Muscular weakness [Unknown]
  - Memory impairment [Unknown]
  - Hallucination [Unknown]
  - Drug ineffective [Unknown]
